FAERS Safety Report 16954335 (Version 1)
Quarter: 2019Q4

REPORT INFORMATION
  Report Type: Spontaneous
  Country: US (occurrence: US)
  Receive Date: 20191023
  Receipt Date: 20191023
  Transmission Date: 20200122
  Serious: No
  Sender: FDA-Public Use
  Company Number: US-ABBVIE-19S-163-2792739-00

PATIENT
  Sex: Female

DRUGS (1)
  1. LUPRON [Suspect]
     Active Substance: LEUPROLIDE ACETATE
     Indication: ENDOMETRIOSIS
     Route: 050

REACTIONS (14)
  - Immunosuppression [Unknown]
  - Amenorrhoea [Unknown]
  - Weight increased [Unknown]
  - Artificial menopause [Unknown]
  - Hand-foot-and-mouth disease [Unknown]
  - Mood swings [Unknown]
  - Influenza [Recovered/Resolved]
  - Pain [Unknown]
  - Influenza [Unknown]
  - Memory impairment [Unknown]
  - Arthralgia [Unknown]
  - Endometriosis [Unknown]
  - Alopecia [Not Recovered/Not Resolved]
  - Depression [Unknown]
